FAERS Safety Report 23130862 (Version 2)
Quarter: 2023Q4

REPORT INFORMATION
  Report Type: Spontaneous
  Country: CN (occurrence: CN)
  Receive Date: 20231031
  Receipt Date: 20231102
  Transmission Date: 20240110
  Serious: Yes (Hospitalization, Other)
  Sender: FDA-Public Use
  Company Number: CN-ORGANON-O2310CHN003588

PATIENT
  Age: 34 Year
  Sex: Female
  Weight: 53 kg

DRUGS (11)
  1. FOLLITROPIN BETA [Suspect]
     Active Substance: FOLLITROPIN BETA
     Indication: Ovulation induction
     Dosage: 120 IU, QD
     Route: 058
     Dates: start: 20230914, end: 20230918
  2. FOLLITROPIN BETA [Suspect]
     Active Substance: FOLLITROPIN BETA
     Dosage: 125IU, QD
     Route: 058
     Dates: start: 20230919, end: 20230921
  3. MENOTROPINS [Suspect]
     Active Substance: MENOTROPINS
     Indication: Ovulation induction
     Dosage: 75 IU, QD
     Route: 030
     Dates: start: 20230914, end: 20230921
  4. MENOTROPINS [Suspect]
     Active Substance: MENOTROPINS
     Dosage: 150 IU, QD
     Route: 030
     Dates: start: 20230927, end: 20230927
  5. CHORIONIC GONADOTROPHIN [Suspect]
     Active Substance: CHORIOGONADOTROPIN ALFA
     Indication: Ovulation induction
     Dosage: 6000 IU, QD
     Route: 030
     Dates: start: 20230927, end: 20230927
  6. GONAL-F [Suspect]
     Active Substance: FOLLITROPIN
     Indication: Ovulation induction
     Dosage: 75 IU, QD
     Route: 058
     Dates: start: 20230925, end: 20230926
  7. LUVERIS [Suspect]
     Active Substance: LUTROPIN ALFA
     Indication: Ovulation induction
     Dosage: 75 IU, QD
     Route: 058
     Dates: start: 20230922, end: 20230926
  8. SODIUM CHLORIDE [Concomitant]
     Active Substance: SODIUM CHLORIDE
     Indication: Vehicle solution use
     Dosage: 2 ML, QD
     Route: 030
     Dates: start: 20230914, end: 20230921
  9. SODIUM CHLORIDE [Concomitant]
     Active Substance: SODIUM CHLORIDE
     Dosage: 2 ML, QD
     Route: 030
     Dates: start: 20230927, end: 20230927
  10. SODIUM CHLORIDE [Concomitant]
     Active Substance: SODIUM CHLORIDE
     Dosage: 2 ML, QD
     Route: 030
     Dates: start: 20230927, end: 20230927
  11. STERILE WATER FOR INJECTION [Concomitant]
     Active Substance: WATER
     Indication: Vehicle solution use
     Dosage: 1 ML, QD
     Route: 058
     Dates: start: 20230925, end: 20230926

REACTIONS (6)
  - Ovarian hyperstimulation syndrome [Recovering/Resolving]
  - Abdominal distension [Recovering/Resolving]
  - Abdominal pain [Recovering/Resolving]
  - Nausea [Recovering/Resolving]
  - Retching [Recovering/Resolving]
  - Tension [Recovering/Resolving]

NARRATIVE: CASE EVENT DATE: 20230929
